FAERS Safety Report 9341295 (Version 1)
Quarter: 2013Q2

REPORT INFORMATION
  Report Type: Spontaneous
  Country: US (occurrence: None)
  Receive Date: 20130610
  Receipt Date: 20130610
  Transmission Date: 20140414
  Serious: Yes (Other)
  Sender: FDA-Public Use
  Company Number: None

PATIENT
  Age: 67 Year
  Sex: Female
  Weight: 49.9 kg

DRUGS (1)
  1. CARBIDOPA\ENTACAPONE\LEVODOPA [Suspect]
     Indication: PARKINSON^S DISEASE
     Route: 048
     Dates: start: 20130115, end: 20130606

REACTIONS (3)
  - Product substitution issue [None]
  - Drug effect decreased [None]
  - Parkinson^s disease [None]
